FAERS Safety Report 17910636 (Version 1)
Quarter: 2020Q2

REPORT INFORMATION
  Report Type: Spontaneous
  Country: US (occurrence: US)
  Receive Date: 20200618
  Receipt Date: 20200618
  Transmission Date: 20200714
  Serious: Yes (Other)
  Sender: FDA-Public Use
  Company Number: US-GLAXOSMITHKLINE-US2020096289

PATIENT
  Age: 55 Year

DRUGS (2)
  1. RANITIDINE HYDROCHLORIDE. [Suspect]
     Active Substance: RANITIDINE HYDROCHLORIDE
     Dosage: UNK
  2. ZANTAC [Suspect]
     Active Substance: RANITIDINE HYDROCHLORIDE
     Dosage: UNK

REACTIONS (13)
  - Gastrointestinal carcinoma [Unknown]
  - Testis cancer [Unknown]
  - Nasal cavity cancer [Unknown]
  - Hepatic cancer [Unknown]
  - Pancreatic carcinoma [Unknown]
  - Throat cancer [Unknown]
  - Renal cancer [Unknown]
  - Gastric cancer [Unknown]
  - Colorectal cancer [Unknown]
  - Oesophageal carcinoma [Unknown]
  - Prostate cancer [Unknown]
  - Lung neoplasm malignant [Unknown]
  - Bladder cancer [Unknown]
